FAERS Safety Report 18884037 (Version 1)
Quarter: 2021Q1

REPORT INFORMATION
  Report Type: Spontaneous
  Country: US (occurrence: US)
  Receive Date: 20210212
  Receipt Date: 20210212
  Transmission Date: 20210420
  Serious: Yes (Other)
  Sender: FDA-Public Use
  Company Number: US-MERZ PHARMACEUTICALS GMBH-21-00471

PATIENT
  Age: 47 Year
  Sex: Female

DRUGS (2)
  1. XEOMIN [Suspect]
     Active Substance: INCOBOTULINUMTOXINA
     Indication: TORTICOLLIS
     Dates: start: 20201216, end: 20201216
  2. XEOMIN [Suspect]
     Active Substance: INCOBOTULINUMTOXINA
     Indication: MIGRAINE

REACTIONS (5)
  - Injection site pain [Unknown]
  - Nausea [Unknown]
  - Off label use [Unknown]
  - Headache [Unknown]
  - Discomfort [Unknown]

NARRATIVE: CASE EVENT DATE: 202012
